FAERS Safety Report 16198614 (Version 1)
Quarter: 2019Q2

REPORT INFORMATION
  Report Type: Spontaneous
  Country: PT (occurrence: PT)
  Receive Date: 20190415
  Receipt Date: 20190415
  Transmission Date: 20190711
  Serious: Yes (Disabling, Other)
  Sender: FDA-Public Use
  Company Number: PT-FRESENIUS KABI-FK201904018

PATIENT
  Age: 74 Year
  Sex: Female

DRUGS (1)
  1. VANCOMYCIN (MANUFACTURER UNKNOWN) [Suspect]
     Active Substance: VANCOMYCIN
     Indication: ENDOPHTHALMITIS

REACTIONS (3)
  - Product use issue [Unknown]
  - Visual acuity reduced [Not Recovered/Not Resolved]
  - Retinal detachment [Unknown]
